FAERS Safety Report 8450533-6 (Version None)
Quarter: 2012Q2

REPORT INFORMATION
  Report Type: 
  Country: None (occurrence: None)
  Receive Date: 20120613
  Receipt Date: 20120516
  Transmission Date: 20120825
  Serious: Yes (Death)
  Sender: FDA-Public Use
  Company Number: EU-2012-10162

PATIENT
  Age: 71 Year

DRUGS (1)
  1. SAMSCA [Suspect]
     Dosage: 15 MG MILLIGRAM(S), DAILY DOSE
     Dates: start: 20120201, end: 20120301

REACTIONS (2)
  - NEOPLASM PROGRESSION [None]
  - LUNG CANCER METASTATIC [None]
